FAERS Safety Report 9184225 (Version 2)
Quarter: 2013Q2

REPORT INFORMATION
  Report Type: Report from Study
  Country: US (occurrence: US)
  Receive Date: 20130322
  Receipt Date: 20130409
  Transmission Date: 20140414
  Serious: Yes (Hospitalization)
  Sender: FDA-Public Use
  Company Number: US-ACTELION-A-US2012-75845

PATIENT
  Age: 48 Year
  Sex: Female

DRUGS (2)
  1. VELETRI [Suspect]
     Indication: PULMONARY ARTERIAL HYPERTENSION
     Dosage: 8 UNK, UNK
     Route: 042
     Dates: start: 20121012
  2. COUMADIN [Concomitant]

REACTIONS (9)
  - Device related infection [Recovered/Resolved]
  - Catheter site pain [Recovered/Resolved]
  - Catheter site erythema [Recovered/Resolved]
  - Catheter site discharge [Recovered/Resolved]
  - Catheter site inflammation [Recovered/Resolved]
  - Cellulitis [Recovered/Resolved]
  - Fatigue [Unknown]
  - Dizziness [Unknown]
  - Skin irritation [Unknown]
